FAERS Safety Report 10561339 (Version 10)
Quarter: 2015Q3

REPORT INFORMATION
  Report Type: Report from Study
  Country: CA (occurrence: CA)
  Receive Date: 20141103
  Receipt Date: 20150710
  Transmission Date: 20151125
  Serious: Yes (Other)
  Sender: FDA-Public Use
  Company Number: CA-MERCK-1404CAN008390

PATIENT
  Age: 63 Year
  Sex: Female
  Weight: 57 kg

DRUGS (10)
  1. CORTATE [Concomitant]
     Active Substance: HYDROCORTISONE
     Indication: RASH
     Dosage: TOTAL DAILY DOSE: 1%, PRN
     Route: 061
     Dates: start: 20140204, end: 20140303
  2. PEMBROLIZUMAB. [Suspect]
     Active Substance: PEMBROLIZUMAB
     Dosage: 10MG/KG, Q2W
     Route: 042
     Dates: start: 20140317, end: 20140317
  3. IRON (UNSPECIFIED) [Concomitant]
     Active Substance: IRON
     Indication: ROUTINE HEALTH MAINTENANCE
     Dosage: 150 MG, BID
     Route: 048
     Dates: start: 200607
  4. POTASSIUM (UNSPECIFIED) [Concomitant]
     Active Substance: POTASSIUM
     Indication: ROUTINE HEALTH MAINTENANCE
     Dosage: 600 MG, QD
     Route: 048
     Dates: start: 200607
  5. DILANTIN [Concomitant]
     Active Substance: PHENYTOIN
     Indication: PROPHYLAXIS
     Dosage: 75 MG, BID
     Route: 048
     Dates: start: 200607
  6. PEMBROLIZUMAB. [Suspect]
     Active Substance: PEMBROLIZUMAB
     Indication: MALIGNANT MELANOMA
     Dosage: 10MG/KG, Q2W
     Route: 042
     Dates: start: 20140204, end: 20140218
  7. PEMBROLIZUMAB. [Suspect]
     Active Substance: PEMBROLIZUMAB
     Dosage: 10MG/KG, Q2W
     Route: 042
     Dates: start: 20140421, end: 20141006
  8. ONDANSETRON [Concomitant]
     Active Substance: ONDANSETRON
     Indication: NAUSEA
     Dosage: TOTAL DAILY DOSE: 8 MG, PRN
     Route: 048
     Dates: start: 20140303, end: 20140317
  9. PEMBROLIZUMAB. [Suspect]
     Active Substance: PEMBROLIZUMAB
     Dosage: 10MG/KG, Q2W
     Route: 042
     Dates: start: 20140303, end: 20140303
  10. PEMBROLIZUMAB. [Suspect]
     Active Substance: PEMBROLIZUMAB
     Dosage: 10MG/KG, Q2W
     Route: 042
     Dates: start: 20141020, end: 20141020

REACTIONS (3)
  - Intraocular pressure decreased [Not Recovered/Not Resolved]
  - Hearing impaired [Recovered/Resolved]
  - Uveitis [Not Recovered/Not Resolved]

NARRATIVE: CASE EVENT DATE: 20140310
